FAERS Safety Report 10709196 (Version 2)
Quarter: 2015Q1

REPORT INFORMATION
  Report Type: Spontaneous
  Country: FR (occurrence: FR)
  Receive Date: 20150114
  Receipt Date: 20150216
  Transmission Date: 20150721
  Serious: Yes (Hospitalization, Other)
  Sender: FDA-Public Use
  Company Number: FR-009507513-1501FRA003061

PATIENT
  Age: 58 Year
  Sex: Female
  Weight: 48 kg

DRUGS (4)
  1. TIENAM [Concomitant]
     Active Substance: CILASTATIN SODIUM\IMIPENEM
     Dosage: UNK
     Dates: start: 20141127, end: 20141201
  2. INVANZ [Suspect]
     Active Substance: ERTAPENEM SODIUM
     Dosage: 1 G, QD
     Dates: start: 20141201, end: 20141205
  3. INVANZ [Suspect]
     Active Substance: ERTAPENEM SODIUM
     Indication: PYELONEPHRITIS
     Dosage: 1 G, QD
     Route: 042
     Dates: start: 20141127
  4. DESERT BOTANICAL AND HERBS DETOX FORMULA [Concomitant]
     Dosage: UNK
     Dates: start: 20141120, end: 20141127

REACTIONS (1)
  - Hepatitis [Recovered/Resolved]

NARRATIVE: CASE EVENT DATE: 20141205
